FAERS Safety Report 5861989-7 (Version None)
Quarter: 2008Q3

REPORT INFORMATION
  Report Type: 
  Country: None (occurrence: None)
  Receive Date: 20080827
  Receipt Date: 20080725
  Transmission Date: 20090109
  Serious: No
  Sender: FDA-Public Use
  Company Number: US-ABBOTT-08P-163-0465625-00

PATIENT
  Sex: Female
  Weight: 76.272 kg

DRUGS (3)
  1. NIASPAN [Suspect]
     Indication: BLOOD CHOLESTEROL INCREASED
     Route: 048
     Dates: start: 20080721, end: 20080724
  2. METFORMIN HCL [Concomitant]
     Indication: DIABETES MELLITUS
  3. LEVOTHYROXINE SODIUM [Concomitant]
     Indication: HYPOTHYROIDISM

REACTIONS (5)
  - ANXIETY [None]
  - BURNING SENSATION [None]
  - DYSPNOEA [None]
  - NAUSEA [None]
  - PRURITUS [None]
